FAERS Safety Report 19977617 (Version 1)
Quarter: 2021Q4

REPORT INFORMATION
  Report Type: Spontaneous
  Country: US (occurrence: US)
  Receive Date: 20211020
  Receipt Date: 20211020
  Transmission Date: 20220303
  Serious: No
  Sender: FDA-Public Use
  Company Number: US-ALLERGAN-2117126US

PATIENT
  Sex: Male

DRUGS (3)
  1. LINZESS [Suspect]
     Active Substance: LINACLOTIDE
     Indication: Constipation
     Dosage: 290MCG IN AM ON EMPTY STOMACH; TOOK ONCE WITH FOOD/UNK THYROID MED
     Route: 048
  2. AMITIZA [Concomitant]
     Active Substance: LUBIPROSTONE
  3. UNK thyroid pill [Concomitant]
     Indication: Thyroid disorder

REACTIONS (4)
  - Expired product administered [Unknown]
  - Inappropriate schedule of product administration [Unknown]
  - Diarrhoea [Recovered/Resolved]
  - Drug ineffective [Unknown]

NARRATIVE: CASE EVENT DATE: 20200101
